FAERS Safety Report 9528050 (Version 1)
Quarter: 2013Q1

REPORT INFORMATION
  Report Type: Spontaneous
  Country: US (occurrence: None)
  Receive Date: 20130329
  Receipt Date: 20130329
  Transmission Date: 20140127
  Serious: Yes (Other)
  Sender: FDA-Public Use
  Company Number: 1000042511

PATIENT
  Age: 94 Year
  Sex: Female

DRUGS (10)
  1. LINZESS [Suspect]
     Indication: IRRITABLE BOWEL SYNDROME
     Dosage: 145 MCG (145 MCG,1 IN 1 D),ORAL
     Route: 048
     Dates: start: 20130205, end: 20130205
  2. LINZESS [Suspect]
     Indication: CONSTIPATION
     Dosage: 145 MCG (145 MCG,1 IN 1 D),ORAL
     Route: 048
     Dates: start: 20130205, end: 20130205
  3. ACTONEL (RISEDRONATE SODIUM) (RISEDRONATE SODIUM) [Concomitant]
  4. LOSARTAN/HYDROCHLOROTHIAZIDE (LOSARTAN/HYDROCHLOROTHIAZIDE) (LOSARTAN/HYDROCHLOROTHIAZIDE)? [Concomitant]
  5. AMLODIPINE (AMLODIPINE) (AMLODIPINE) [Concomitant]
  6. PRILOSEC (OMEPRAZOLE) (OMEPRAZOLE) [Concomitant]
  7. ASPIRIN (ACETYLSALICYLIC ACID) (ACETYLSALICYLIC ACID) [Concomitant]
  8. VITAM D (VITAMIN D) (VITAMN D) [Concomitant]
  9. TYLENOL (ACETAMINOPHEN) (ACETAMINOPEHN) [Concomitant]
  10. POTASSIUM (POTASIUM) (POTASSIUM) [Concomitant]

REACTIONS (4)
  - Anorectal discomfort [None]
  - Abdominal discomfort [None]
  - Abdominal pain [None]
  - Drug effect increased [None]
